FAERS Safety Report 8996983 (Version 1)
Quarter: 2012Q4

REPORT INFORMATION
  Report Type: Spontaneous
  Country: US (occurrence: None)
  Receive Date: 20121231
  Receipt Date: 20121231
  Transmission Date: 20130627
  Serious: Yes (Life-Threatening, Hospitalization)
  Sender: FDA-Public Use
  Company Number: None

PATIENT
  Age: 55 Year
  Sex: Male
  Weight: 128.2 kg

DRUGS (2)
  1. SUCCINYLCHOLINE [Suspect]
     Route: 042
     Dates: start: 20121006, end: 20121006
  2. GEMFIBROZIL [Suspect]
     Route: 048
     Dates: start: 20090202, end: 20121006

REACTIONS (2)
  - Renal failure chronic [None]
  - Rhabdomyolysis [None]
